FAERS Safety Report 23504965 (Version 1)
Quarter: 2024Q1

REPORT INFORMATION
  Report Type: Spontaneous
  Country: GB (occurrence: GB)
  Receive Date: 20240209
  Receipt Date: 20240209
  Transmission Date: 20240410
  Serious: No
  Sender: FDA-Public Use
  Company Number: None

PATIENT
  Age: 25 Year
  Sex: Male
  Weight: 60 kg

DRUGS (1)
  1. GABAPENTIN [Suspect]
     Active Substance: GABAPENTIN
     Indication: Anxiety
     Dosage: 400 MILLIGRAM, PRN (AS NEEDED), TABLET
     Route: 065

REACTIONS (4)
  - Euphoric mood [Unknown]
  - Libido increased [Not Recovered/Not Resolved]
  - Euphoric mood [Not Recovered/Not Resolved]
  - Feeling of relaxation [Not Recovered/Not Resolved]

NARRATIVE: CASE EVENT DATE: 20170101
